FAERS Safety Report 8734284 (Version 2)
Quarter: 2012Q4

REPORT INFORMATION
  Report Type: 
  Country: US (occurrence: US)
  Receive Date: 20120821
  Receipt Date: 20121005
  Transmission Date: 20130627
  Serious: No
  Sender: FDA-Public Use
  Company Number: US-ASTRAZENECA-2012SE55725

PATIENT
  Age: 82 Year
  Sex: Female

DRUGS (2)
  1. SYMBICORT [Suspect]
     Dosage: 320 MCG, BID
     Route: 055
     Dates: start: 2007
  2. SYMBICORT [Suspect]
     Dosage: 160/4.5 MCG, 2 PUFFS BID
     Route: 055

REACTIONS (2)
  - Dyspnoea [Recovered/Resolved with Sequelae]
  - Drug dose omission [Recovered/Resolved with Sequelae]
